FAERS Safety Report 9028551 (Version 1)
Quarter: 2013Q1

REPORT INFORMATION
  Report Type: Spontaneous
  Country: US (occurrence: US)
  Receive Date: 20130124
  Receipt Date: 20130124
  Transmission Date: 20140127
  Serious: Yes (Other)
  Sender: FDA-Public Use
  Company Number: US-GLAXOSMITHKLINE-A0968607A

PATIENT
  Age: 62 Year
  Sex: Female
  Weight: 84.9 kg

DRUGS (18)
  1. BENLYSTA [Suspect]
     Indication: SYSTEMIC LUPUS ERYTHEMATOSUS
     Dosage: 10MGK CYCLIC
     Route: 042
  2. ACIDOPHILUS [Concomitant]
     Dosage: 600MG PER DAY
  3. AMBIEN [Concomitant]
     Dosage: 10MG PER DAY
  4. DIAMOX [Concomitant]
     Dosage: 250MG PER DAY
  5. FOSAMAX [Concomitant]
  6. HYDROCHLOROTHIAZIDE [Concomitant]
     Dosage: 25MG PER DAY
  7. ELAVIL [Concomitant]
     Dosage: 200MG PER DAY
  8. IMURAN [Concomitant]
     Dosage: 125MG PER DAY
  9. PREDNISONE [Concomitant]
     Dosage: 20MG PER DAY
  10. NEURONTIN [Concomitant]
     Dosage: 900MG PER DAY
  11. OMEPRAZOLE [Concomitant]
     Dosage: 40MG PER DAY
  12. PLAQUENIL [Concomitant]
     Dosage: 200MG PER DAY
  13. LUMIGAN [Concomitant]
     Dosage: .03PCT PER DAY
  14. THEODUR [Concomitant]
     Dosage: 200MG PER DAY
  15. CALCIUM WITH VITAMIN D [Concomitant]
     Dosage: 600MG PER DAY
  16. CELEBREX [Concomitant]
     Dosage: 200MG PER DAY
  17. LEVOTHYROXINE [Concomitant]
     Dates: start: 20120106, end: 20120106
  18. LEVOTHYROXINE [Concomitant]
     Dates: start: 20120106

REACTIONS (4)
  - Hypothyroidism [Recovered/Resolved]
  - Adrenal insufficiency [Recovered/Resolved]
  - White blood cell count increased [Recovered/Resolved]
  - Bronchitis [Recovered/Resolved]
